FAERS Safety Report 8059561-6 (Version None)
Quarter: 2012Q1

REPORT INFORMATION
  Report Type: 
  Country: None (occurrence: None)
  Receive Date: 20120119
  Receipt Date: 20120119
  Transmission Date: 20120608
  Serious: Yes (Other)
  Sender: FDA-Public Use
  Company Number: None

PATIENT
  Sex: Female
  Weight: 43.0917 kg

DRUGS (2)
  1. LICE OUT SPRAY [Suspect]
  2. RID SPRAY [Suspect]
     Indication: LICE INFESTATION
     Dosage: WEEKLY OR EVERY OTHER WEEK

REACTIONS (2)
  - MALAISE [None]
  - VOMITING [None]
